FAERS Safety Report 20715133 (Version 1)
Quarter: 2022Q2

REPORT INFORMATION
  Report Type: Spontaneous
  Country: AU (occurrence: AU)
  Receive Date: 20220415
  Receipt Date: 20220415
  Transmission Date: 20220721
  Serious: Yes (Other)
  Sender: FDA-Public Use
  Company Number: None

PATIENT
  Age: 46 Year
  Sex: Female

DRUGS (4)
  1. ARIPIPRAZOLE [Suspect]
     Active Substance: ARIPIPRAZOLE
     Indication: Product used for unknown indication
     Dosage: 15 MG
     Route: 065
  2. OLANZAPINE [Suspect]
     Active Substance: OLANZAPINE
     Indication: Product used for unknown indication
     Dosage: 20 MG
     Route: 065
     Dates: start: 20211017, end: 20211021
  3. OLANZAPINE [Suspect]
     Active Substance: OLANZAPINE
     Dosage: 15 MG
     Route: 065
     Dates: start: 20211022, end: 20211029
  4. OLANZAPINE [Suspect]
     Active Substance: OLANZAPINE
     Dosage: 10 MG
     Route: 065
     Dates: start: 20211030, end: 20211031

REACTIONS (14)
  - Depressed level of consciousness [Recovered/Resolved]
  - COVID-19 [Unknown]
  - Skin disorder [Unknown]
  - Feeling abnormal [Unknown]
  - Increased appetite [Unknown]
  - Pain [Unknown]
  - Hypersensitivity [Unknown]
  - Musculoskeletal stiffness [Unknown]
  - Myalgia [Unknown]
  - Rash [Unknown]
  - Urticaria [Unknown]
  - Weight increased [Unknown]
  - Product taste abnormal [Unknown]
  - Product use issue [Unknown]

NARRATIVE: CASE EVENT DATE: 20211017
